FAERS Safety Report 6578356-3 (Version None)
Quarter: 2010Q1

REPORT INFORMATION
  Report Type: 
  Country: None (occurrence: None)
  Receive Date: 20100211
  Receipt Date: 20100205
  Transmission Date: 20100710
  Serious: Yes (Other)
  Sender: FDA-Public Use
  Company Number: CHPA2010US02642

PATIENT
  Age: 48 Year
  Sex: Male
  Weight: 104.31 kg

DRUGS (1)
  1. EXCEDRIN (MIGRAINE) [Suspect]
     Indication: HEADACHE
     Dosage: UNK, UNK
     Route: 048
     Dates: end: 20100101

REACTIONS (6)
  - BLINDNESS UNILATERAL [None]
  - FACE INJURY [None]
  - FACIAL OPERATION [None]
  - INTENTIONAL DRUG MISUSE [None]
  - RETINAL TEAR [None]
  - ROAD TRAFFIC ACCIDENT [None]
